FAERS Safety Report 5383873-8 (Version None)
Quarter: 2007Q3

REPORT INFORMATION
  Report Type: 
  Country: None (occurrence: None)
  Receive Date: 20070711
  Receipt Date: 20070629
  Transmission Date: 20080115
  Serious: Yes (Hospitalization)
  Sender: FDA-Public Use
  Company Number: US-JNJFOC-20070700547

PATIENT
  Age: 88 Year
  Sex: Male
  Weight: 79.38 kg

DRUGS (9)
  1. RAZADYNE ER [Suspect]
  2. RAZADYNE ER [Suspect]
     Indication: MEMORY IMPAIRMENT
  3. TYLOX [Suspect]
     Indication: PAIN
     Dosage: AS NECESSARY
     Route: 048
  4. DIPYRIDAMOL [Concomitant]
     Dosage: YEARS
  5. RANITIDINE HCL [Concomitant]
     Dosage: YEARS
  6. SIMVASTATIN [Concomitant]
     Indication: BLOOD CHOLESTEROL INCREASED
     Dosage: YEARS
  7. ASA BABY [Concomitant]
     Indication: EYE DISORDER
     Dosage: YEARS
  8. EYE CAPS [Concomitant]
     Indication: EYE DISORDER
     Dosage: YEARS
  9. DOCUSATE SODIUM [Concomitant]
     Indication: ABNORMAL FAECES
     Dosage: YEARS

REACTIONS (9)
  - DELUSION [None]
  - DRUG INEFFECTIVE [None]
  - HALLUCINATION [None]
  - LOGORRHOEA [None]
  - PNEUMONIA [None]
  - RIB FRACTURE [None]
  - SLEEP DISORDER [None]
  - SOMNOLENCE [None]
  - STUPOR [None]
